FAERS Safety Report 7722807 (Version 3)
Quarter: 2012Q4

REPORT INFORMATION
  Report Type: 
  Country: US (occurrence: US)
  Receive Date: 20101220
  Receipt Date: 20120831
  Transmission Date: 20130627
  Serious: Yes (Death, Other)
  Sender: FDA-Public Use
  Company Number: US-ROCHE-747368

PATIENT
  Sex: Male

DRUGS (15)
  1. CELLCEPT [Suspect]
     Indication: PROPHYLAXIS AGAINST TRANSPLANT REJECTION
     Dosage: DOSE: 250 mg in morning/500mg in evening
     Route: 048
  2. RAPAMUNE [Concomitant]
     Indication: PROPHYLAXIS AGAINST TRANSPLANT REJECTION
     Route: 048
  3. PREDNISONE [Concomitant]
     Indication: PROPHYLAXIS AGAINST TRANSPLANT REJECTION
     Route: 048
  4. COUMADIN [Concomitant]
     Indication: ATRIAL FIBRILLATION
     Route: 048
  5. LANTUS [Concomitant]
     Indication: DIABETES MELLITUS
     Dosage: DOSE: 25 UNITS; ONCE DAILY IN THE EVENING
     Route: 058
  6. NOVOLOG [Concomitant]
     Indication: DIABETES MELLITUS
     Dosage: DOSE: 55
     Route: 058
  7. CRESTOR [Concomitant]
     Indication: HYPERLIPIDAEMIA
     Route: 048
  8. ALLOPURINOL [Concomitant]
     Indication: GOUT
     Route: 048
  9. FOLIC ACID [Concomitant]
     Route: 048
  10. OMEGA-3 TRIGLYCERIDES [Concomitant]
     Dosage: FREQ: QD; DRUG REPORTED AS OMEGA-3 FISH OIL
     Route: 048
  11. TUMS [Concomitant]
     Route: 048
  12. TORSEMIDE [Concomitant]
     Indication: POLYURIA
     Route: 048
  13. PROCRIT [Concomitant]
     Route: 058
  14. NEURONTIN [Concomitant]
     Indication: NEUROPATHY PERIPHERAL
     Route: 048
  15. MIDODRINE [Concomitant]
     Indication: HYPOTENSION
     Route: 048

REACTIONS (3)
  - Renal failure chronic [Fatal]
  - Squamous cell carcinoma of skin [Fatal]
  - Diabetic complication [Unknown]
